FAERS Safety Report 8210201-2 (Version None)
Quarter: 2012Q1

REPORT INFORMATION
  Report Type: 
  Country: None (occurrence: None)
  Receive Date: 20120314
  Receipt Date: 20111110
  Transmission Date: 20120608
  Serious: No
  Sender: FDA-Public Use
  Company Number: US-ASTRAZENECA-2009UW03390

PATIENT
  Age: 80 Year
  Sex: Female

DRUGS (2)
  1. CRESTOR [Suspect]
     Route: 048
     Dates: start: 20070416
  2. TOPROL-XL [Suspect]
     Route: 048

REACTIONS (7)
  - ARTHRITIS [None]
  - MUSCLE SPASMS [None]
  - PAIN [None]
  - FEELING ABNORMAL [None]
  - DRUG ADMINISTRATION ERROR [None]
  - GAIT DISTURBANCE [None]
  - ADVERSE DRUG REACTION [None]
